FAERS Safety Report 8447207-4 (Version None)
Quarter: 2012Q2

REPORT INFORMATION
  Report Type: 
  Country: None (occurrence: None)
  Receive Date: 20120619
  Receipt Date: 20110919
  Transmission Date: 20120825
  Serious: No
  Sender: FDA-Public Use
  Company Number: US-PFIZER INC-K201101105

PATIENT
  Sex: Male
  Weight: 68.027 kg

DRUGS (1)
  1. LEVOXYL [Suspect]
     Indication: THYROIDECTOMY
     Dosage: UNK
     Route: 048
     Dates: start: 20030101

REACTIONS (2)
  - PRURITUS [None]
  - HYPERSENSITIVITY [None]
